FAERS Safety Report 8389019-6 (Version None)
Quarter: 2012Q2

REPORT INFORMATION
  Report Type: 
  Country: None (occurrence: None)
  Receive Date: 20120528
  Receipt Date: 20120523
  Transmission Date: 20120825
  Serious: No
  Sender: FDA-Public Use
  Company Number: US-PFIZER INC-2012125359

PATIENT

DRUGS (11)
  1. NUCYNTA [Suspect]
     Indication: DEPRESSION
     Dosage: UNK
  2. DIPHENHYDRAMINE HYDROCHLORIDE [Suspect]
     Dosage: UNK
  3. BETADINE [Suspect]
     Dosage: UNK
  4. IODINE [Suspect]
     Dosage: UNK
  5. MORPHINE SULFATE [Suspect]
     Dosage: UNK
  6. ASPIRIN [Suspect]
     Dosage: UNK
  7. DEMEROL [Suspect]
     Dosage: UNK
  8. NIACIN [Suspect]
     Indication: NICOTINAMIDE DECREASED
     Dosage: UNK
  9. PENICILLIN [Suspect]
     Dosage: UNK
  10. BENADRYL [Suspect]
     Dosage: UNK
  11. NUCYNTA [Suspect]
     Indication: HEADACHE

REACTIONS (1)
  - DRUG HYPERSENSITIVITY [None]
